FAERS Safety Report 6915947-1 (Version None)
Quarter: 2010Q3

REPORT INFORMATION
  Report Type: 
  Country: None (occurrence: None)
  Receive Date: 20100810
  Receipt Date: 20100709
  Transmission Date: 20110219
  Serious: No
  Sender: FDA-Public Use
  Company Number: US-BAYER-201018190BCC

PATIENT
  Age: 68 Year
  Sex: Female
  Weight: 113 kg

DRUGS (2)
  1. ALEVE (CAPLET) [Suspect]
     Indication: ARTHRITIS
     Dosage: TOTAL DAILY DOSE: 440 MG  UNIT DOSE: 220 MG
     Route: 048
  2. SIMVASTATIN [Concomitant]
     Route: 065

REACTIONS (1)
  - ARTHRITIS [None]
